FAERS Safety Report 8601996-4 (Version None)
Quarter: 2012Q3

REPORT INFORMATION
  Report Type: 
  Country: None (occurrence: None)
  Receive Date: 20120817
  Receipt Date: 20120810
  Transmission Date: 20120928
  Serious: Yes (Other)
  Sender: FDA-Public Use
  Company Number: FR-PFIZER INC-2012173156

PATIENT
  Age: 70 Year
  Sex: Male

DRUGS (1)
  1. FLUCONAZOLE [Suspect]
     Indication: STENOTROPHOMONAS INFECTION
     Dosage: 100 MG (2 SPOONS) IN THE MORNING AND 2 SPOONS IN THE EVENING
     Route: 048
     Dates: start: 20120711, end: 20120717

REACTIONS (3)
  - CARDIAC FIBRILLATION [None]
  - CARDIAC DISORDER [None]
  - TACHYCARDIA [None]
